FAERS Safety Report 8707504 (Version 2)
Quarter: 2012Q4

REPORT INFORMATION
  Report Type: 
  Country: US (occurrence: US)
  Receive Date: 20120804
  Receipt Date: 20120921
  Transmission Date: 20130627
  Serious: No
  Sender: FDA-Public Use
  Company Number: US-009507513-1207USA011676

PATIENT
  Sex: Female

DRUGS (9)
  1. PEGINTRON [Suspect]
     Indication: HEPATITIS C
     Dosage: 80 Microgram, qw
     Route: 058
     Dates: start: 20120418
  2. VICTRELIS [Suspect]
     Indication: HEPATITIS C
     Dosage: 800 mg, tid
     Dates: start: 201204
  3. RIBASPHERE [Concomitant]
     Dosage: UNK
     Dates: start: 20120418
  4. PREMARIN [Concomitant]
  5. CENTRUM (MINERALS (UNSPECIFIED) (+) VITAMINS (UNSPECIFIED)) [Concomitant]
  6. BUSPIRONE HYDROCHLORIDE [Concomitant]
  7. METHYLTESTOSTERONE (ESTROGENS, CONJUGATED (+) METHYLTESTOSTERONE) [Concomitant]
  8. TYLENOL [Concomitant]
  9. PREPARATION H HEMORRHOIDAL SUPPOSITORIES [Concomitant]

REACTIONS (10)
  - Alopecia [Unknown]
  - Insomnia [Unknown]
  - Dry skin [Unknown]
  - Pruritus [Unknown]
  - Fatigue [Unknown]
  - Rash [Unknown]
  - Lip dry [Unknown]
  - Chapped lips [Unknown]
  - Dysgeusia [Unknown]
  - Lip haemorrhage [Recovered/Resolved]
